FAERS Safety Report 8917556 (Version 3)
Quarter: 2013Q1

REPORT INFORMATION
  Report Type: Report from Study
  Country: JP (occurrence: JP)
  Receive Date: 20121120
  Receipt Date: 20130215
  Transmission Date: 20140127
  Serious: Yes (Hospitalization, Other)
  Sender: FDA-Public Use
  Company Number: JP-GILEAD-2012-0064712

PATIENT
  Age: 39 Year
  Sex: Male

DRUGS (3)
  1. EMTRICITABINE/TENOFOVIR DISOPROXIL FUMARATE [Suspect]
     Indication: HIV INFECTION
     Dosage: 1 DF, QD
     Route: 048
     Dates: start: 20050621
  2. ISENTRESS [Concomitant]
     Indication: HIV INFECTION
     Dosage: UNK
     Dates: start: 20110323
  3. CROSS EIGHT M [Concomitant]
     Indication: HIV INFECTION
     Dosage: UNK
     Dates: start: 20040629

REACTIONS (2)
  - Femur fracture [Recovering/Resolving]
  - Osteoporosis [Not Recovered/Not Resolved]
